FAERS Safety Report 25326011 (Version 1)
Quarter: 2025Q2

REPORT INFORMATION
  Report Type: Spontaneous
  Country: IT (occurrence: IT)
  Receive Date: 20250516
  Receipt Date: 20250516
  Transmission Date: 20250717
  Serious: Yes (Other)
  Sender: PHARMACEUTICAL ASSOC
  Company Number: IT-PAIPHARMA-2025-IT-000035

PATIENT
  Age: 26 Year
  Sex: Male
  Weight: 77 kg

DRUGS (7)
  1. VALPROIC ACID [Suspect]
     Active Substance: VALPROIC ACID
     Indication: Partial seizures
  2. DEXAMETHASONE [Suspect]
     Active Substance: DEXAMETHASONE
     Indication: Adrenogenital syndrome
  3. CARBAMAZEPINE [Suspect]
     Active Substance: CARBAMAZEPINE
     Indication: Partial seizures
  4. RAMIPRIL [Concomitant]
     Active Substance: RAMIPRIL
  5. LERCANIDIPINE [Concomitant]
     Active Substance: LERCANIDIPINE
  6. CANRENONE [Concomitant]
     Active Substance: CANRENONE
  7. PERAMPANEL [Concomitant]
     Active Substance: PERAMPANEL

REACTIONS (1)
  - Drug interaction [Unknown]
